FAERS Safety Report 15444846 (Version 1)
Quarter: 2018Q3

REPORT INFORMATION
  Report Type: Spontaneous
  Country: US (occurrence: US)
  Receive Date: 20180928
  Receipt Date: 20180928
  Transmission Date: 20181010
  Serious: No
  Sender: FDA-Public Use
  Company Number: US-AMGEN-USASP2018052686

PATIENT
  Age: 72 Year
  Sex: Female

DRUGS (3)
  1. PROLIA [Suspect]
     Active Substance: DENOSUMAB
     Indication: OSTEOPOROSIS POSTMENOPAUSAL
     Dosage: 60 MG, Q6MO
     Route: 065
  2. HYDROCORTISONE. [Concomitant]
     Active Substance: HYDROCORTISONE
     Indication: ADDISON^S DISEASE
     Dosage: 25 MG, BID
  3. LYRICA [Concomitant]
     Active Substance: PREGABALIN
     Indication: ADDISON^S DISEASE
     Dosage: UNK
     Dates: start: 2011

REACTIONS (3)
  - Acne [Unknown]
  - Sleep disorder due to a general medical condition [Unknown]
  - Rash pruritic [Not Recovered/Not Resolved]
